FAERS Safety Report 4392131-X (Version None)
Quarter: 2004Q3

REPORT INFORMATION
  Report Type: 
  Country: None (occurrence: None)
  Receive Date: 20040702
  Receipt Date: 20040702
  Transmission Date: 20050211
  Serious: No
  Sender: FDA-Public Use
  Company Number: None

PATIENT
  Sex: Male
  Weight: 132 kg

DRUGS (5)
  1. CYCLOPHOSPHAMIDE [Suspect]
     Dosage: 6540 MG
     Dates: start: 20030124, end: 20030126
  2. FLUDARABINE PHOSPHATE [Suspect]
     Dosage: 325 MG
     Dates: start: 20030121, end: 20030126
  3. G-CSF (AMGEN) [Suspect]
     Dosage: 960 MCG
  4. METHOTREXATE [Suspect]
     Dosage: 33 MG
  5. TACROMILUS [Suspect]
     Dosage: 360 MG
     Dates: start: 20030127, end: 20030630

REACTIONS (13)
  - ACIDOSIS [None]
  - ALPHA HAEMOLYTIC STREPTOCOCCAL INFECTION [None]
  - GRAFT VERSUS HOST DISEASE [None]
  - HYPOTENSION [None]
  - INFECTION IN AN IMMUNOCOMPROMISED HOST [None]
  - PNEUMONIA [None]
  - POST PROCEDURAL COMPLICATION [None]
  - RESPIRATORY SYNCYTIAL VIRUS INFECTION [None]
  - SERRATIA INFECTION [None]
  - SPUTUM CULTURE POSITIVE [None]
  - STAPHYLOCOCCAL INFECTION [None]
  - STENOTROPHOMONAS INFECTION [None]
  - ZYGOMYCOSIS [None]
